FAERS Safety Report 5387164-0 (Version None)
Quarter: 2007Q3

REPORT INFORMATION
  Report Type: 
  Country: None (occurrence: None)
  Receive Date: 20070711
  Receipt Date: 20070626
  Transmission Date: 20080115
  Serious: Yes (Hospitalization)
  Sender: FDA-Public Use
  Company Number: 015534

PATIENT

DRUGS (1)
  1. WARFARIN SODIUM [Suspect]

REACTIONS (2)
  - CARDIAC ARREST [None]
  - INTERNATIONAL NORMALISED RATIO FLUCTUATION [None]
